FAERS Safety Report 6613116-6 (Version None)
Quarter: 2010Q1

REPORT INFORMATION
  Report Type: 
  Country: None (occurrence: None)
  Receive Date: 20100223
  Receipt Date: 20100205
  Transmission Date: 20100710
  Serious: Yes (Hospitalization, Other)
  Sender: FDA-Public Use
  Company Number: AUR-APL-2009-01707

PATIENT
  Age: 25 Year
  Sex: Male

DRUGS (2)
  1. METFORMIN HYDROCHLORIDE [Suspect]
     Indication: HYPERINSULINAEMIA
     Dosage: 500MG, TID
     Dates: start: 20080601, end: 20080101
  2. AMISULPRIDE [Suspect]
     Indication: MENTAL DISORDER
     Dosage: 200MG, DAILY
     Dates: start: 20080101, end: 20080101

REACTIONS (8)
  - ALANINE AMINOTRANSFERASE INCREASED [None]
  - ALDOLASE INCREASED [None]
  - ASPARTATE AMINOTRANSFERASE INCREASED [None]
  - BLOOD CREATINE PHOSPHOKINASE INCREASED [None]
  - DRUG INTERACTION [None]
  - MENTAL DISORDER [None]
  - MUSCULAR WEAKNESS [None]
  - MYOGLOBIN BLOOD INCREASED [None]
